FAERS Safety Report 5596561-X (Version None)
Quarter: 2008Q1

REPORT INFORMATION
  Report Type: 
  Country: None (occurrence: None)
  Receive Date: 20080118
  Receipt Date: 20080108
  Transmission Date: 20080703
  Serious: Yes (Other)
  Sender: FDA-Public Use
  Company Number: US-PFIZER INC-2008002141

PATIENT
  Age: 56 Year
  Sex: Female

DRUGS (6)
  1. SUTENT [Suspect]
     Indication: METASTATIC RENAL CELL CARCINOMA
     Route: 048
     Dates: start: 20070629, end: 20070906
  2. SUTENT [Suspect]
     Route: 048
     Dates: start: 20070928, end: 20071019
  3. SUTENT [Suspect]
     Dosage: DAILY DOSE:25MG
     Route: 048
     Dates: start: 20071109, end: 20071113
  4. AVASTIN [Suspect]
     Indication: METASTATIC RENAL CELL CARCINOMA
     Route: 042
     Dates: start: 20070628, end: 20071108
  5. NORVASC [Concomitant]
  6. LANSOPRAZOLE [Concomitant]

REACTIONS (2)
  - HAEMOLYTIC ANAEMIA [None]
  - THROMBOTIC MICROANGIOPATHY [None]
